FAERS Safety Report 5211547-2 (Version None)
Quarter: 2007Q1

REPORT INFORMATION
  Report Type: 
  Country: None (occurrence: None)
  Receive Date: 20070117
  Receipt Date: 20070105
  Transmission Date: 20070707
  Serious: Yes (Death, Hospitalization)
  Sender: FDA-Public Use
  Company Number: US-SANOFI-SYNTHELABO-A03200700253

PATIENT
  Sex: Female
  Weight: 63.49 kg

DRUGS (6)
  1. PROZAC [Concomitant]
     Route: 048
     Dates: start: 20040201
  2. ESTRATEST [Concomitant]
     Dosage: UNK
     Route: 065
     Dates: start: 19980101
  3. METOPROLOL SUCCINATE [Concomitant]
     Route: 048
     Dates: start: 20060101
  4. ASPIRIN [Concomitant]
     Route: 048
     Dates: start: 20040101
  5. PLETAL [Concomitant]
     Route: 048
     Dates: start: 20040101
  6. PLAVIX [Suspect]
     Indication: DRUG USE FOR UNKNOWN INDICATION
     Route: 048
     Dates: start: 20040101

REACTIONS (3)
  - DYSPNOEA [None]
  - LACTIC ACIDOSIS [None]
  - SYNCOPE [None]
